FAERS Safety Report 17741940 (Version 10)
Quarter: 2021Q1

REPORT INFORMATION
  Report Type: Report from Study
  Country: AU (occurrence: AU)
  Receive Date: 20200504
  Receipt Date: 20210120
  Transmission Date: 20210419
  Serious: Yes (Death, Hospitalization)
  Sender: FDA-Public Use
  Company Number: AU-EISAI MEDICAL RESEARCH-EC-2020-074075

PATIENT
  Age: 70 Year
  Sex: Male
  Weight: 56 kg

DRUGS (24)
  1. PEMBROLIZUMAB. [Suspect]
     Active Substance: PEMBROLIZUMAB
     Indication: NON-SMALL CELL LUNG CANCER METASTATIC
     Route: 041
     Dates: start: 20200325, end: 20200325
  2. FOLIC ACID. [Concomitant]
     Active Substance: FOLIC ACID
     Dates: start: 20200402, end: 20200424
  3. ENDONE [Concomitant]
     Active Substance: OXYCODONE HYDROCHLORIDE
     Dates: start: 20200222, end: 20200718
  4. MOVICOL [Concomitant]
     Active Substance: POLYETHYLENE GLYCOL 3350\POTASSIUM CHLORIDE\SODIUM BICARBONATE\SODIUM CHLORIDE
     Dates: start: 20200222
  5. DEXAMETHASONE. [Concomitant]
     Active Substance: DEXAMETHASONE
     Dates: start: 20200414, end: 20200416
  6. PEGFILGRASTIM [Concomitant]
     Active Substance: PEGFILGRASTIM
     Dates: start: 20200416, end: 20200416
  7. GLICLAZIDE [Concomitant]
     Active Substance: GLICLAZIDE
     Dates: start: 201401
  8. EXFORGE [Concomitant]
     Active Substance: AMLODIPINE BESYLATE\VALSARTAN
     Dates: start: 201601
  9. AKYNZEO [Concomitant]
     Active Substance: NETUPITANT\PALONOSETRON HYDROCHLORIDE
     Route: 048
     Dates: start: 20200415, end: 20200415
  10. PEMBROLIZUMAB. [Suspect]
     Active Substance: PEMBROLIZUMAB
     Route: 041
     Dates: start: 20200415, end: 20200415
  11. PEMETREXED. [Suspect]
     Active Substance: PEMETREXED
     Indication: NON-SMALL CELL LUNG CANCER METASTATIC
     Route: 041
     Dates: start: 20200325, end: 20200325
  12. COLOXYL WITH SENNA [Concomitant]
     Active Substance: DOCUSATE SODIUM\SENNOSIDES A AND B
     Dates: start: 20200222, end: 20200719
  13. PEMBROLIZUMAB. [Suspect]
     Active Substance: PEMBROLIZUMAB
     Route: 041
     Dates: start: 20200505
  14. PEMETREXED. [Suspect]
     Active Substance: PEMETREXED
     Route: 041
     Dates: start: 20200415, end: 20200415
  15. METFORMIN [Concomitant]
     Active Substance: METFORMIN HYDROCHLORIDE
     Dates: start: 20200326, end: 20200630
  16. SERETIDE [Concomitant]
     Active Substance: FLUTICASONE PROPIONATE\SALMETEROL XINAFOATE
     Dates: start: 20200402
  17. CARBOPLATIN. [Suspect]
     Active Substance: CARBOPLATIN
     Dosage: AREA UNDER THE CURVE (AUC) 5 MG/ML/MIN
     Route: 041
     Dates: start: 20200505
  18. PEMETREXED. [Suspect]
     Active Substance: PEMETREXED
     Route: 041
     Dates: start: 20200505
  19. CARBOPLATIN. [Suspect]
     Active Substance: CARBOPLATIN
     Dosage: AREA UNDER THE CURVE (AUC) 5 MG/ML/MIN
     Route: 041
     Dates: start: 20200415, end: 20200415
  20. ACETAMINOPHEN. [Concomitant]
     Active Substance: ACETAMINOPHEN
     Dates: start: 20200222
  21. CRESTOR [Concomitant]
     Active Substance: ROSUVASTATIN CALCIUM
     Dates: start: 20200326
  22. LENVATINIB [Suspect]
     Active Substance: LENVATINIB
     Indication: NON-SMALL CELL LUNG CANCER METASTATIC
     Route: 048
     Dates: start: 20200325
  23. CARBOPLATIN. [Suspect]
     Active Substance: CARBOPLATIN
     Indication: NON-SMALL CELL LUNG CANCER METASTATIC
     Dosage: AREA UNDER THE CURVE (AUC) 5 MG/ML/MIN
     Route: 041
     Dates: start: 20200325, end: 20200325
  24. OXYCONTIN [Concomitant]
     Active Substance: OXYCODONE HYDROCHLORIDE
     Dates: start: 20200324, end: 20200423

REACTIONS (1)
  - Epistaxis [Recovered/Resolved]

NARRATIVE: CASE EVENT DATE: 20200424
